FAERS Safety Report 5490989-4 (Version None)
Quarter: 2007Q4

REPORT INFORMATION
  Report Type: 
  Country: None (occurrence: None)
  Receive Date: 20071019
  Receipt Date: 20071011
  Transmission Date: 20080405
  Serious: Yes (Hospitalization, Congenital Anomaly)
  Sender: FDA-Public Use
  Company Number: US-PFIZER INC-2007072104

PATIENT
  Sex: Female
  Weight: 0.92 kg

DRUGS (11)
  1. VIRACEPT [Suspect]
     Indication: HIV INFECTION
     Dosage: DAILY DOSE:2500MG-FREQ:DAILY
     Route: 048
  2. ZIAGEN [Suspect]
     Indication: HIV INFECTION
     Dosage: DAILY DOSE:600MG-FREQ:DAILY
     Route: 048
  3. 3TC [Suspect]
     Indication: HIV INFECTION
  4. VIRAMUNE [Suspect]
     Indication: HIV INFECTION
     Dosage: DAILY DOSE:400MG-FREQ:DAILY
     Route: 054
  5. FORTOVASE [Suspect]
     Indication: HIV INFECTION
     Dosage: DAILY DOSE:2400MG
     Route: 048
  6. AZT [Suspect]
     Indication: HIV INFECTION
  7. EPIVIR [Suspect]
     Indication: HIV INFECTION
     Dosage: DAILY DOSE:300MG-FREQ:DAILY
  8. RETROVIR [Suspect]
     Indication: HIV INFECTION
     Dosage: DAILY DOSE:600MG-FREQ:DAILY
     Route: 048
     Dates: end: 20030312
  9. DEXAMETHASONE 0.5MG TAB [Suspect]
  10. INDOCIN [Suspect]
  11. VIDEX [Concomitant]
     Dosage: DAILY DOSE:200MG-FREQ:DAILY
     Route: 048

REACTIONS (5)
  - BREECH DELIVERY [None]
  - CONGENITAL ANOMALY [None]
  - JOINT DISLOCATION [None]
  - PATENT DUCTUS ARTERIOSUS [None]
  - PREMATURE BABY [None]
